FAERS Safety Report 24249478 (Version 1)
Quarter: 2024Q3

REPORT INFORMATION
  Report Type: Spontaneous
  Country: CN (occurrence: CN)
  Receive Date: 20240826
  Receipt Date: 20240826
  Transmission Date: 20241017
  Serious: Yes (Other)
  Sender: BAUSCH AND LOMB
  Company Number: CN-MLMSERVICE-20240820-PI154318-00117-1

PATIENT
  Age: 8 Year
  Sex: Male

DRUGS (4)
  1. DEXAMETHASONE [Suspect]
     Active Substance: DEXAMETHASONE
     Indication: B-cell type acute leukaemia
     Dosage: RE-INDUCTION VDLD CHEMOTHERAPY REGIMEN
     Route: 065
  2. VINCRISTINE [Concomitant]
     Active Substance: VINCRISTINE
     Indication: B-cell type acute leukaemia
     Dosage: RE-INDUCTION VDLD CHEMOTHERAPY REGIMEN
     Route: 065
  3. DAUNORUBICIN [Concomitant]
     Active Substance: DAUNORUBICIN
     Indication: B-cell type acute leukaemia
     Dosage: RE-INDUCTION VDLD CHEMOTHERAPY REGIMEN
     Route: 065
  4. PEGASPARGASE [Concomitant]
     Active Substance: PEGASPARGASE
     Indication: B-cell type acute leukaemia
     Dosage: RE-INDUCTION VDLD CHEMOTHERAPY REGIMEN
     Route: 065

REACTIONS (2)
  - Adrenal insufficiency [Unknown]
  - Hyponatraemia [Recovered/Resolved]
